FAERS Safety Report 6776711-X (Version None)
Quarter: 2010Q2

REPORT INFORMATION
  Report Type: 
  Country: None (occurrence: None)
  Receive Date: 20100617
  Receipt Date: 20100617
  Transmission Date: 20101027
  Serious: Yes (Hospitalization)
  Sender: FDA-Public Use
  Company Number: None

PATIENT
  Sex: Female
  Weight: 74 kg

DRUGS (1)
  1. MEMANTINE HCL [Suspect]
     Dosage: 1270 MG

REACTIONS (2)
  - FALL [None]
  - WRIST FRACTURE [None]
